FAERS Safety Report 8951012 (Version 2)
Quarter: 2013Q1

REPORT INFORMATION
  Report Type: Spontaneous
  Country: JP (occurrence: JP)
  Receive Date: 20121207
  Receipt Date: 20130208
  Transmission Date: 20140127
  Serious: Yes (Death, Other)
  Sender: FDA-Public Use
  Company Number: JP-BAYER-2012-125695

PATIENT
  Age: 79 Year
  Sex: Male
  Weight: 53 kg

DRUGS (10)
  1. NEXAVAR [Suspect]
     Indication: HEPATOCELLULAR CARCINOMA
     Dosage: 400 MG, BID
     Route: 048
     Dates: start: 20121105, end: 20121112
  2. NEXAVAR [Suspect]
     Indication: HEPATOCELLULAR CARCINOMA
     Dosage: 400 MG, QD
     Route: 048
     Dates: start: 20121113, end: 20121115
  3. AMLODIPINE BESYLATE [Suspect]
     Indication: HYPERTENSION
     Dosage: DAILY DOSE 5 MG
     Route: 048
     Dates: start: 20121107
  4. TERNELIN [Concomitant]
     Dosage: DAILY DOSE 3 MG
     Route: 048
     Dates: start: 20110402
  5. URDESTON [Concomitant]
     Dosage: DAILY DOSE 600 MG
     Route: 048
     Dates: start: 2001
  6. TAKEPRON [Concomitant]
     Dosage: DAILY DOSE 15 MG
     Route: 048
     Dates: start: 2001
  7. BENZALIN [Concomitant]
     Dosage: DAILY DOSE 5 MG
     Route: 048
     Dates: start: 2001
  8. ETICALM [Concomitant]
     Dosage: DAILY DOSE 1 MG
     Route: 048
     Dates: start: 2001
  9. EURODIN [Concomitant]
     Dosage: DAILY DOSE 2 MG
     Route: 048
     Dates: start: 2001
  10. EPIRUBICIN HYDROCHLORIDE [Concomitant]
     Dosage: DAILY DOSE 30 MG
     Route: 013
     Dates: start: 20120913, end: 20120913

REACTIONS (8)
  - Hepatitis fulminant [Fatal]
  - Hepatic encephalopathy [Fatal]
  - Hepatic function abnormal [Fatal]
  - Pyrexia [Fatal]
  - Platelet count decreased [None]
  - Diarrhoea [None]
  - Rash [None]
  - Hypertension [None]
